FAERS Safety Report 6253790-X (Version None)
Quarter: 2009Q3

REPORT INFORMATION
  Report Type: 
  Country: None (occurrence: None)
  Receive Date: 20090702
  Receipt Date: 20090623
  Transmission Date: 20100115
  Serious: Yes (Hospitalization)
  Sender: FDA-Public Use
  Company Number: US-JNJCH-2009017382

PATIENT
  Age: 77 Year
  Sex: Female
  Weight: 59 kg

DRUGS (12)
  1. ROGAINE [Suspect]
     Indication: ALOPECIA
     Dosage: TEXT:UNSPECIFIED, ABOUT A WEEK
     Route: 061
     Dates: start: 20090601, end: 20090608
  2. MULTI-VITAMINS [Concomitant]
     Indication: DRUG USE FOR UNKNOWN INDICATION
     Dosage: TEXT:UNSPECIFIED
     Route: 065
  3. EVISTA [Concomitant]
     Indication: BONE DISORDER
     Dosage: TEXT:60MG ONE A DAY
     Route: 065
  4. METFORMIN [Concomitant]
     Indication: DIABETES MELLITUS
     Dosage: TEXT:500MG TWICE DAILY
     Route: 065
  5. FUROSEMIDE INTENSOL [Concomitant]
     Indication: BLOOD PRESSURE
     Dosage: TEXT:20MG ONE A DAY
     Route: 065
  6. LIPITOR [Concomitant]
     Indication: BLOOD CHOLESTEROL
     Dosage: TEXT:10MG ONE A DAY
     Route: 065
  7. VITAMIN D [Concomitant]
     Dosage: TEXT:400 MG
     Route: 065
  8. ASPIRIN [Concomitant]
     Indication: DRUG USE FOR UNKNOWN INDICATION
     Dosage: TEXT:81MG ONE A DAY
     Route: 065
  9. EFFEXOR [Concomitant]
     Indication: DEPRESSION
     Dosage: TEXT:150MG ONE A DAY
     Route: 065
  10. LISINOPRIL [Concomitant]
     Indication: BLOOD PRESSURE
     Dosage: TEXT:10MG ONE A DAY
     Route: 065
  11. GLYBURIDE [Concomitant]
     Indication: DIABETES MELLITUS
     Dosage: TEXT:5MG ONE A DAY
     Route: 065
  12. CALCIUM [Concomitant]
     Indication: VITAMIN SUPPLEMENTATION
     Dosage: TEXT:500MG ONE A DAY
     Route: 065

REACTIONS (2)
  - DIZZINESS [None]
  - GAIT DISTURBANCE [None]
